FAERS Safety Report 9109175 (Version 1)
Quarter: 2013Q1

REPORT INFORMATION
  Report Type: Spontaneous
  Country: US (occurrence: US)
  Receive Date: 20130222
  Receipt Date: 20130222
  Transmission Date: 20140127
  Serious: Yes (Other)
  Sender: FDA-Public Use
  Company Number: US-TEVA-387478USA

PATIENT
  Age: 2 Year
  Sex: Male

DRUGS (1)
  1. VINCRISTINE [Suspect]
     Indication: OVERDOSE
     Dosage: RECEIVED 2MG INSTEAD OF 0.2MG
     Route: 065

REACTIONS (13)
  - Accidental overdose [Recovered/Resolved]
  - Cardiac arrest [Recovered/Resolved]
  - Respiratory failure [Recovered/Resolved]
  - Bone marrow failure [Recovered/Resolved]
  - Inappropriate antidiuretic hormone secretion [Recovered/Resolved]
  - Diastolic dysfunction [Recovered/Resolved]
  - Neuropathy peripheral [Recovered/Resolved]
  - Functional gastrointestinal disorder [Recovered/Resolved]
  - Hypotonia [Recovered/Resolved]
  - Mucosal inflammation [Recovered/Resolved]
  - Pyrexia [Recovered/Resolved]
  - Irritability [Recovered/Resolved]
  - Incorrect dose administered [Recovered/Resolved]
